FAERS Safety Report 23217544 (Version 1)
Quarter: 2023Q4

REPORT INFORMATION
  Report Type: Spontaneous
  Country: US (occurrence: None)
  Receive Date: 20231121
  Receipt Date: 20231121
  Transmission Date: 20240110
  Serious: Yes (Life-Threatening, Hospitalization, Disabling)
  Sender: FDA-Public Use
  Company Number: None

PATIENT
  Age: 71 Year
  Sex: Female
  Weight: 62.1 kg

DRUGS (14)
  1. PROPOFOL [Suspect]
     Active Substance: PROPOFOL
     Indication: Surgery
     Dosage: OTHER ROUTE : IV (I AM NOT SURE OF HOW THIS ISA GUESS);?
     Route: 050
     Dates: start: 20231109, end: 20231109
  2. FENTANYL [Suspect]
     Active Substance: FENTANYL\FENTANYL CITRATE
  3. METOPROLOL [Concomitant]
     Active Substance: METOPROLOL
  4. AMLODIPINE [Concomitant]
     Active Substance: AMLODIPINE BESYLATE
  5. VALSARTAN [Concomitant]
     Active Substance: VALSARTAN
  6. HYDROCHLOROTHIAZIDE [Concomitant]
     Active Substance: HYDROCHLOROTHIAZIDE
  7. CELEBREX [Concomitant]
     Active Substance: CELECOXIB
  8. POTASIUM CHLORIDE [Concomitant]
  9. TYLENOL [Concomitant]
     Active Substance: ACETAMINOPHEN
  10. ASPIRIN [Concomitant]
     Active Substance: ASPIRIN
  11. MAGNESIUM OXIDE [Concomitant]
     Active Substance: MAGNESIUM OXIDE
  12. HERBALS\TURMERIC [Concomitant]
     Active Substance: HERBALS\TURMERIC
  13. VITAMINS [Concomitant]
     Active Substance: VITAMINS
  14. Joint formula [Concomitant]

REACTIONS (6)
  - Heart rate decreased [None]
  - Hypertension [None]
  - Cerebrovascular accident [None]
  - Mental status changes [None]
  - Loss of consciousness [None]
  - Amnesia [None]

NARRATIVE: CASE EVENT DATE: 20231109
